FAERS Safety Report 9859481 (Version 4)
Quarter: 2014Q2

REPORT INFORMATION
  Report Type: Spontaneous
  Country: US (occurrence: US)
  Receive Date: 20140131
  Receipt Date: 20140522
  Transmission Date: 20141212
  Serious: Yes (Hospitalization)
  Sender: FDA-Public Use
  Company Number: US-B.I. PHARMACEUTICALS,INC./RIDGEFIELD-2013-BI-19165BP

PATIENT
  Age: 81 Year
  Sex: Female
  Weight: 99.7 kg

DRUGS (16)
  1. PRADAXA [Suspect]
     Indication: ATRIAL FIBRILLATION
     Dosage: 300 MG
     Route: 048
     Dates: start: 20110420, end: 20110702
  2. PRADAXA [Suspect]
     Indication: ANTICOAGULANT THERAPY
  3. CALCIUM [Concomitant]
     Route: 065
  4. FELDENE [Concomitant]
     Route: 065
  5. HYDROCHLOROTHIAZIDE [Concomitant]
     Route: 065
     Dates: start: 2004
  6. MAGNESIUM [Concomitant]
     Route: 065
  7. OMEGA FATTY ACIDS [Concomitant]
     Route: 065
  8. LASIX [Concomitant]
     Route: 065
     Dates: start: 2008
  9. LEVOTHYROXINE [Concomitant]
     Route: 065
  10. METOPROLOL [Concomitant]
     Route: 065
     Dates: start: 201106
  11. NORCO [Concomitant]
     Route: 065
  12. POTASSIUM [Concomitant]
     Route: 065
  13. SPIRONOLACTONE [Concomitant]
     Route: 065
     Dates: start: 201103
  14. TRAMADOL [Concomitant]
     Route: 065
  15. VITAMIN B12 [Concomitant]
     Route: 065
     Dates: start: 201106
  16. ZINC [Concomitant]
     Route: 065
     Dates: start: 2011

REACTIONS (2)
  - Lower gastrointestinal haemorrhage [Unknown]
  - Coagulation time prolonged [Unknown]
